FAERS Safety Report 10510288 (Version 1)
Quarter: 2014Q4

REPORT INFORMATION
  Report Type: Spontaneous
  Country: US (occurrence: None)
  Receive Date: 20141009
  Receipt Date: 20141009
  Transmission Date: 20150528
  Serious: No
  Sender: FDA-Public Use
  Company Number: None

PATIENT
  Age: 29 Year
  Sex: Female
  Weight: 49.9 kg

DRUGS (1)
  1. ACTONEL [Suspect]
     Active Substance: RISEDRONATE SODIUM
     Indication: OSTEOPOROSIS
     Dosage: 1 PILL, ONCE A MONTH, TAKEN BY MOUTH
     Route: 048
     Dates: start: 20130101, end: 20141008

REACTIONS (2)
  - Quality of life decreased [None]
  - Hot flush [None]
